FAERS Safety Report 17574831 (Version 1)
Quarter: 2020Q1

REPORT INFORMATION
  Report Type: Other
  Country: IS (occurrence: IS)
  Receive Date: 20200324
  Receipt Date: 20200324
  Transmission Date: 20200409
  Serious: Yes (Hospitalization, Other)
  Sender: FDA-Public Use
  Company Number: IS-SUNRISE PHARMACEUTICAL, INC.-2081911

PATIENT
  Age: 67 Year
  Sex: Female

DRUGS (2)
  1. VORICONAZOLE. [Interacting]
     Active Substance: VORICONAZOLE
     Route: 040
  2. OXYCODONE HYDROCHLORIDE. [Suspect]
     Active Substance: OXYCODONE HYDROCHLORIDE
     Indication: CHEST PAIN
     Route: 065

REACTIONS (9)
  - Overdose [Recovering/Resolving]
  - Blood pressure decreased [Recovering/Resolving]
  - Altered state of consciousness [Recovering/Resolving]
  - Sedation [Recovering/Resolving]
  - Muscle twitching [Recovering/Resolving]
  - Drug interaction [Unknown]
  - Dysarthria [Recovering/Resolving]
  - Delirium [Recovering/Resolving]
  - Respiratory rate decreased [Recovering/Resolving]
